FAERS Safety Report 5845903-6 (Version None)
Quarter: 2008Q3

REPORT INFORMATION
  Report Type: 
  Country: None (occurrence: None)
  Receive Date: 20080814
  Receipt Date: 20080808
  Transmission Date: 20090109
  Serious: Yes (Death)
  Sender: FDA-Public Use
  Company Number: US-ELI_LILLY_AND_COMPANY-US200807005773

PATIENT

DRUGS (3)
  1. HUMULIN 70/30 [Suspect]
     Dosage: 35 U, EACH MORNING
  2. HUMULIN 70/30 [Suspect]
     Dosage: 25 U, EACH EVENING
  3. AVODART [Concomitant]

REACTIONS (2)
  - HYPOGLYCAEMIA [None]
  - INCORRECT DOSE ADMINISTERED [None]
